FAERS Safety Report 9306315 (Version 1)
Quarter: 2013Q1

REPORT INFORMATION
  Report Type: Spontaneous
  Country: US (occurrence: None)
  Receive Date: 20121220
  Receipt Date: 20121220
  Transmission Date: 20140127
  Serious: Yes (Other)
  Sender: FDA-Public Use
  Company Number: ADR-2012-01727

PATIENT
  Sex: Male

DRUGS (2)
  1. GABLOFEN [Suspect]
     Indication: MUSCLE SPASTICITY
  2. GABLOFEN [Suspect]
     Indication: MULTIPLE SCLEROSIS

REACTIONS (4)
  - Septic shock [None]
  - Implant site infection [None]
  - Osteomyelitis [None]
  - Osteomyelitis [None]
